FAERS Safety Report 12330756 (Version 1)
Quarter: 2016Q2

REPORT INFORMATION
  Report Type: Spontaneous
  Country: US (occurrence: None)
  Receive Date: 20160503
  Receipt Date: 20160503
  Transmission Date: 20160815
  Serious: No
  Sender: FDA-Public Use
  Company Number: None

PATIENT
  Age: 69 Year
  Sex: Female

DRUGS (1)
  1. SOVALDI [Suspect]
     Active Substance: SOFOSBUVIR
     Route: 048

REACTIONS (3)
  - Pruritus [None]
  - Constipation [None]
  - Rash [None]

NARRATIVE: CASE EVENT DATE: 20160502
